FAERS Safety Report 21578732 (Version 1)
Quarter: 2022Q4

REPORT INFORMATION
  Report Type: Spontaneous
  Country: CA (occurrence: CA)
  Receive Date: 20221110
  Receipt Date: 20221110
  Transmission Date: 20230113
  Serious: Yes (Death, Hospitalization, Other)
  Sender: FDA-Public Use
  Company Number: CA-002147023-NVSC2022CA253151

PATIENT
  Age: 74 Year
  Sex: Male

DRUGS (10)
  1. CYCLOSPORINE [Suspect]
     Active Substance: CYCLOSPORINE
     Indication: Pure white cell aplasia
     Dosage: 50 MG
     Route: 065
  2. CYCLOSPORINE [Suspect]
     Active Substance: CYCLOSPORINE
     Dosage: 100 MG
     Route: 065
  3. CYCLOSPORINE [Suspect]
     Active Substance: CYCLOSPORINE
     Dosage: 75 MG
     Route: 065
  4. DANAZOL [Suspect]
     Active Substance: DANAZOL
     Indication: Pure white cell aplasia
     Dosage: 200 MG
     Route: 065
  5. DANAZOL [Suspect]
     Active Substance: DANAZOL
     Indication: Cytopenia
  6. DAPSONE [Suspect]
     Active Substance: DAPSONE
     Indication: Pure white cell aplasia
     Dosage: 100 MG
     Route: 065
  7. DAPSONE [Suspect]
     Active Substance: DAPSONE
     Indication: Cytopenia
  8. PREDNISOLONE [Suspect]
     Active Substance: PREDNISOLONE
     Indication: Pure white cell aplasia
     Dosage: 1 MG/KG
     Route: 065
  9. METFORMIN [Concomitant]
     Active Substance: METFORMIN HYDROCHLORIDE
     Indication: Type 2 diabetes mellitus
     Route: 065
  10. ATORVASTATIN [Concomitant]
     Active Substance: ATORVASTATIN
     Indication: Dyslipidaemia
     Dosage: UNK
     Route: 065

REACTIONS (6)
  - Renal failure [Fatal]
  - Acute kidney injury [Fatal]
  - Multiple organ dysfunction syndrome [Fatal]
  - Sepsis [Fatal]
  - Thrombocytopenia [Fatal]
  - Drug ineffective for unapproved indication [Fatal]
